FAERS Safety Report 9467789 (Version 2)
Quarter: 2013Q4

REPORT INFORMATION
  Report Type: Report from Study
  Country: CA (occurrence: CA)
  Receive Date: 20130821
  Receipt Date: 20131112
  Transmission Date: 20140711
  Serious: Yes (Other)
  Sender: FDA-Public Use
  Company Number: CA-JNJFOC-20130805166

PATIENT
  Age: 31 Year
  Sex: Female
  Weight: 114 kg

DRUGS (3)
  1. STELARA [Suspect]
     Indication: HIDRADENITIS
     Route: 058
  2. STELARA [Suspect]
     Indication: HIDRADENITIS
     Route: 058
     Dates: start: 200907
  3. DOXYCYCLINE [Concomitant]
     Route: 065

REACTIONS (2)
  - Hidradenitis [Not Recovered/Not Resolved]
  - Off label use [Not Recovered/Not Resolved]
